FAERS Safety Report 22091356 (Version 2)
Quarter: 2023Q2

REPORT INFORMATION
  Report Type: Spontaneous
  Country: US (occurrence: US)
  Receive Date: 20230314
  Receipt Date: 20230405
  Transmission Date: 20230722
  Serious: Yes (Hospitalization)
  Sender: FDA-Public Use
  Company Number: US-MORPHOSYS US-2023-MOR003202-US

PATIENT
  Age: 64 Year
  Sex: Male

DRUGS (2)
  1. MONJUVI [Suspect]
     Active Substance: TAFASITAMAB-CXIX
     Indication: Diffuse large B-cell lymphoma
     Route: 042
  2. LENALIDOMIDE [Suspect]
     Active Substance: LENALIDOMIDE
     Indication: Diffuse large B-cell lymphoma
     Route: 048

REACTIONS (7)
  - Platelet count decreased [Unknown]
  - Neutropenia [Unknown]
  - Pyomyositis [Unknown]
  - Bone marrow failure [Unknown]
  - Citrobacter test positive [Unknown]
  - Pain in extremity [Unknown]
  - Tendon rupture [Unknown]
